FAERS Safety Report 7587741-2 (Version None)
Quarter: 2011Q3

REPORT INFORMATION
  Report Type: 
  Country: None (occurrence: None)
  Receive Date: 20110704
  Receipt Date: 20110624
  Transmission Date: 20111222
  Serious: Yes (Other)
  Sender: FDA-Public Use
  Company Number: US-AMGEN-USASP2011032448

PATIENT
  Age: 67 Year
  Sex: Female

DRUGS (14)
  1. LEVOTHYROXINE SODIUM [Concomitant]
  2. THERAGRAN                          /00554301/ [Concomitant]
  3. EXFORGE [Concomitant]
  4. WELLBUTRIN [Concomitant]
  5. CRESTOR [Concomitant]
  6. VITAMIN B [Concomitant]
  7. BYSTOLIC [Concomitant]
  8. PROMETHAZINE [Concomitant]
  9. SINGULAIR [Concomitant]
  10. EPIPEN [Concomitant]
  11. PROLIA [Suspect]
     Indication: OSTEOPOROSIS POSTMENOPAUSAL
     Dosage: 60 MG, Q6MO
     Dates: start: 20110622
  12. ARICEPT [Concomitant]
  13. PLAVIX [Concomitant]
  14. VITAMIN D [Concomitant]

REACTIONS (2)
  - CIRCUMORAL OEDEMA [None]
  - EYE SWELLING [None]
